FAERS Safety Report 9467855 (Version 3)
Quarter: 2014Q2

REPORT INFORMATION
  Report Type: Spontaneous
  Country: US (occurrence: US)
  Receive Date: 20130821
  Receipt Date: 20140501
  Transmission Date: 20141212
  Serious: No
  Sender: FDA-Public Use
  Company Number: US-009507513-1308USA009139

PATIENT
  Age: 59 Year
  Sex: Male

DRUGS (5)
  1. PEGINTRON [Suspect]
     Indication: HEPATITIS C
     Dosage: 0.5 ML, ONCE A WEEK
     Route: 058
     Dates: start: 20130521, end: 20131028
  2. REBETOL [Suspect]
     Indication: HEPATITIS C
     Dosage: 3 DF, BID
     Route: 048
     Dates: start: 20130521, end: 20131028
  3. ASPIRIN [Concomitant]
     Dosage: UNK UNK, QD
     Route: 048
  4. WELLBUTRIN [Concomitant]
     Dosage: 150 DAILY
     Route: 048
  5. COLACE [Concomitant]
     Dosage: 100 DAILY
     Route: 048

REACTIONS (3)
  - Dysphonia [Unknown]
  - Alopecia [Not Recovered/Not Resolved]
  - Hepatitis viral [Unknown]
